FAERS Safety Report 9913960 (Version 2)
Quarter: 2014Q1

REPORT INFORMATION
  Report Type: Spontaneous
  Country: US (occurrence: US)
  Receive Date: 20140220
  Receipt Date: 20140317
  Transmission Date: 20141002
  Serious: Yes (Other)
  Sender: FDA-Public Use
  Company Number: US-FRI-1000054255

PATIENT
  Age: 69 Year
  Sex: Female

DRUGS (5)
  1. VIIBRYD [Suspect]
     Indication: ANXIETY
     Dosage: 10 MG
     Route: 048
     Dates: start: 20140125, end: 20140131
  2. VIIBRYD [Suspect]
     Dosage: 20 MG
     Route: 048
     Dates: start: 20140201, end: 20140207
  3. VIIBRYD [Suspect]
     Dosage: 40 MG
     Route: 048
     Dates: start: 20140208, end: 20140209
  4. VIIBRYD [Suspect]
     Dosage: 20 MG
     Dates: start: 20140211, end: 20140212
  5. LORAZEPAM [Concomitant]
     Indication: ANXIETY

REACTIONS (4)
  - Tooth abscess [Recovered/Resolved]
  - Headache [Recovered/Resolved]
  - Diarrhoea [Recovered/Resolved]
  - Off label use [Recovered/Resolved]
